FAERS Safety Report 12655237 (Version 1)
Quarter: 2016Q3

REPORT INFORMATION
  Report Type: Other
  Country: JP (occurrence: JP)
  Receive Date: 20160816
  Receipt Date: 20160816
  Transmission Date: 20161109
  Serious: Yes (Life-Threatening, Hospitalization)
  Sender: FDA-Public Use
  Company Number: JP-CELLTRION INC.-2016JP003804

PATIENT

DRUGS (4)
  1. INFLIXIMAB BS FOR I.V. INFUSION100 (CTH) [Suspect]
     Active Substance: INFLIXIMAB
     Indication: RHEUMATOID ARTHRITIS
     Dosage: 170 MG/BODY/DAY
     Route: 042
     Dates: start: 20160414, end: 20160414
  2. METHOTREXATE. [Concomitant]
     Active Substance: METHOTREXATE
     Indication: RHEUMATOID ARTHRITIS
     Dosage: 10 MG 1/WEEK
  3. PREDNISOLONE. [Concomitant]
     Active Substance: PREDNISOLONE
     Indication: RHEUMATOID ARTHRITIS
     Dosage: 5 MG, DAILY
  4. INFLIXIMAB BS FOR I.V. INFUSION100 (CTH) [Suspect]
     Active Substance: INFLIXIMAB
     Dosage: UNK

REACTIONS (3)
  - Plasma cell myeloma [Not Recovered/Not Resolved]
  - Pyrexia [Recovered/Resolved]
  - Infusion related reaction [Recovered/Resolved]

NARRATIVE: CASE EVENT DATE: 20160414
